FAERS Safety Report 5702427-4 (Version None)
Quarter: 2008Q2

REPORT INFORMATION
  Report Type: 
  Country: None (occurrence: None)
  Receive Date: 20080411
  Receipt Date: 20080407
  Transmission Date: 20081010
  Serious: Yes (Hospitalization, Other)
  Sender: FDA-Public Use
  Company Number: US-BRISTOL-MYERS SQUIBB COMPANY-14067094

PATIENT
  Age: 70 Year
  Sex: Male

DRUGS (8)
  1. ERBITUX [Suspect]
     Indication: NEOPLASM MALIGNANT
     Dosage: FIRST LOADING DOSE = 400MG/M*2 ON 10-DEC-07. TOTAL 4 WEEKLY DOSES. 250MG/M2 / 7D
     Route: 042
     Dates: start: 20080110, end: 20080110
  2. RADIATION THERAPY [Suspect]
     Indication: NEOPLASM MALIGNANT
     Dosage: DOSE - 70GY TO BASE OF TONGUE CANCER AND 60 GY TO BILATERAL NECK. SKIN DOSE 30 GY.
     Dates: start: 20071205, end: 20080125
  3. METOPROLOL TARTRATE [Concomitant]
     Route: 048
  4. VICODIN [Concomitant]
     Route: 048
  5. ETHYOL [Concomitant]
  6. DOCUSATE SODIUM [Concomitant]
  7. LANSOPRAZOLE [Concomitant]
  8. AMLODIPINE BESYLATE [Concomitant]

REACTIONS (4)
  - MALNUTRITION [None]
  - MUCOSAL INFLAMMATION [None]
  - RADIATION SKIN INJURY [None]
  - SKIN EXFOLIATION [None]
